FAERS Safety Report 21404854 (Version 1)
Quarter: 2022Q3

REPORT INFORMATION
  Report Type: Spontaneous
  Country: US (occurrence: None)
  Receive Date: 20220930
  Receipt Date: 20220930
  Transmission Date: 20221027
  Serious: Yes (Hospitalization)
  Sender: FDA-Public Use
  Company Number: None

PATIENT
  Age: 63 Year
  Sex: Male
  Weight: 111 kg

DRUGS (1)
  1. APIXABAN [Suspect]
     Active Substance: APIXABAN
     Indication: Atrial fibrillation
     Dosage: 2.5 MG BID PO?
     Route: 048
     Dates: start: 20210923, end: 20220520

REACTIONS (3)
  - Cerebrovascular accident [None]
  - Cardiac failure [None]
  - Condition aggravated [None]

NARRATIVE: CASE EVENT DATE: 20220519
